FAERS Safety Report 6719216-4 (Version None)
Quarter: 2010Q2

REPORT INFORMATION
  Report Type: 
  Country: None (occurrence: None)
  Receive Date: 20100510
  Receipt Date: 20100510
  Transmission Date: 20101027
  Serious: Yes (Hospitalization)
  Sender: FDA-Public Use
  Company Number: None

PATIENT
  Sex: Male
  Weight: 80.9 kg

DRUGS (3)
  1. CARBOPLATIN [Suspect]
     Dosage: 951 MG
  2. ERBITUX [Suspect]
     Dosage: 500 MG
  3. TAXOL [Suspect]
     Dosage: 400 MG

REACTIONS (5)
  - BLOOD PH INCREASED [None]
  - BRADYCARDIA [None]
  - CARDIO-RESPIRATORY ARREST [None]
  - CONFUSIONAL STATE [None]
  - RESPIRATORY FAILURE [None]
